FAERS Safety Report 4308270-5 (Version None)
Quarter: 2004Q1

REPORT INFORMATION
  Report Type: 
  Country: None (occurrence: None)
  Receive Date: 20040301
  Receipt Date: 20031017
  Transmission Date: 20041129
  Serious: No
  Sender: FDA-Public Use
  Company Number: US-BRISTOL-MYERS SQUIBB COMPANY-12413969

PATIENT
  Age: 66 Year
  Sex: Female
  Weight: 82 kg

DRUGS (12)
  1. GLUCOPHAGE [Suspect]
     Indication: DIABETES MELLITUS
     Route: 048
     Dates: start: 20030701
  2. NEURONTIN [Suspect]
  3. FUROSEMIDE [Concomitant]
  4. POTASSIUM [Concomitant]
  5. SYNTHROID [Concomitant]
  6. ALBUTEROL [Concomitant]
  7. HYDROCODONE [Concomitant]
  8. MOM [Concomitant]
  9. METAMUCIL-2 [Concomitant]
  10. COLACE [Concomitant]
  11. IBUPROFEN [Concomitant]
  12. ACETAMINOPHEN [Concomitant]

REACTIONS (1)
  - EUPHORIC MOOD [None]
